FAERS Safety Report 6873264-2 (Version None)
Quarter: 2010Q3

REPORT INFORMATION
  Report Type: 
  Country: None (occurrence: None)
  Receive Date: 20100723
  Receipt Date: 20090107
  Transmission Date: 20110219
  Serious: No
  Sender: FDA-Public Use
  Company Number: US-PFIZER INC-2008150443

PATIENT
  Sex: Female
  Weight: 95.71 kg

DRUGS (6)
  1. CHANTIX [Suspect]
     Indication: SMOKING CESSATION THERAPY
     Dosage: 1 MG, 2X/DAY
     Dates: start: 20081118
  2. GABAPENTIN [Concomitant]
     Dosage: UNK
  3. LYRICA [Concomitant]
     Dosage: UNK
  4. EFFEXOR XR [Concomitant]
     Dosage: UNK
  5. CYCLOBENZAPRINE [Concomitant]
     Dosage: UNK
  6. PIROXICAM [Concomitant]
     Dosage: UNK

REACTIONS (2)
  - ANGER [None]
  - DEPRESSION [None]
